FAERS Safety Report 6100102-8 (Version None)
Quarter: 2009Q1

REPORT INFORMATION
  Report Type: 
  Country: None (occurrence: None)
  Receive Date: 20090227
  Receipt Date: 20090227
  Transmission Date: 20090719
  Serious: Yes (Other)
  Sender: FDA-Public Use
  Company Number: None

PATIENT
  Age: 17 Month
  Sex: Female
  Weight: 7.02 kg

DRUGS (4)
  1. LEVETIRACETAM [Suspect]
     Indication: CEREBRAL DISORDER
     Dosage: 2 ML TID - PO SINCE
     Route: 048
     Dates: start: 20080417
  2. LEVETIRACETAM [Suspect]
     Indication: GRAND MAL CONVULSION
     Dosage: 2 ML TID - PO SINCE
     Route: 048
     Dates: start: 20080417
  3. VIT B-6 [Concomitant]
  4. DIASTAT [Concomitant]

REACTIONS (2)
  - CONVULSION [None]
  - THERAPEUTIC RESPONSE UNEXPECTED WITH DRUG SUBSTITUTION [None]
